FAERS Safety Report 6641456-3 (Version None)
Quarter: 2010Q1

REPORT INFORMATION
  Report Type: 
  Country: None (occurrence: None)
  Receive Date: 20100317
  Receipt Date: 20100317
  Transmission Date: 20100710
  Serious: Yes (Other)
  Sender: FDA-Public Use
  Company Number: None

PATIENT
  Sex: Male

DRUGS (1)
  1. SIMPONI [Suspect]
     Indication: RHEUMATOID ARTHRITIS
     Dosage: 50 MG MONTHLY SUBQ
     Route: 058
     Dates: start: 20100206, end: 20100308

REACTIONS (1)
  - UNEVALUABLE EVENT [None]
